FAERS Safety Report 6046021-7 (Version None)
Quarter: 2009Q1

REPORT INFORMATION
  Report Type: 
  Country: None (occurrence: None)
  Receive Date: 20090116
  Receipt Date: 20090108
  Transmission Date: 20090719
  Serious: Yes (Hospitalization)
  Sender: FDA-Public Use
  Company Number: OSCN-PR-0901S-0007

PATIENT
  Age: 82 Year
  Sex: Female

DRUGS (7)
  1. OMNISCAN [Suspect]
     Indication: GAIT DISTURBANCE
     Dosage: 12 ML, SINGLE DOSE, I.V.
     Route: 042
     Dates: start: 20081113, end: 20081113
  2. BACLOFEN [Concomitant]
  3. PROPOXYPHENE ACETAMINOPHEN (DARVOCET) [Concomitant]
  4. DONEPEZIL HCL [Concomitant]
  5. POTASSIUM CHLORIDE [Concomitant]
  6. NORVASC [Concomitant]
  7. AVAPRO [Concomitant]

REACTIONS (3)
  - ATAXIA [None]
  - DIZZINESS [None]
  - PANCREATITIS [None]
